FAERS Safety Report 7666406-2 (Version None)
Quarter: 2011Q3

REPORT INFORMATION
  Report Type: 
  Country: None (occurrence: None)
  Receive Date: 20110806
  Receipt Date: 20110527
  Transmission Date: 20111222
  Serious: No
  Sender: FDA-Public Use
  Company Number: US-ABBOTT-11P-163-0729042-00

PATIENT
  Sex: Male
  Weight: 95.34 kg

DRUGS (6)
  1. TRIAMTERENE AND HYDROCHLOROTHIAZIDE [Concomitant]
     Indication: PRODUCT USED FOR UNKNOWN INDICATION
  2. CARVEDILOL [Concomitant]
     Indication: PRODUCT USED FOR UNKNOWN INDICATION
  3. FENOFIBRATE [Concomitant]
     Indication: PRODUCT USED FOR UNKNOWN INDICATION
  4. ALLEGRA [Concomitant]
     Indication: HYPERSENSITIVITY
  5. WARFARIN SODIUM [Concomitant]
     Indication: CARDIAC PACEMAKER INSERTION
  6. NIASPAN [Suspect]
     Indication: HIGH DENSITY LIPOPROTEIN DECREASED
     Dosage: 1 TAB IN AM, 2 TAB AT BEDTIME, 1 IN 12 HRS
     Route: 048

REACTIONS (2)
  - FLUSHING [None]
  - RASH GENERALISED [None]
